FAERS Safety Report 6047133-4 (Version None)
Quarter: 2009Q1

REPORT INFORMATION
  Report Type: 
  Country: None (occurrence: None)
  Receive Date: 20090122
  Receipt Date: 20090113
  Transmission Date: 20090719
  Serious: Yes (Hospitalization)
  Sender: FDA-Public Use
  Company Number: PHEH2008US10772

PATIENT
  Sex: Female

DRUGS (3)
  1. VIVELLE-DOT [Suspect]
     Dosage: 0.1 MG, UNK
     Route: 062
     Dates: start: 20060901
  2. VIVELLE-DOT [Suspect]
     Dosage: 0.75 MG, UNK
     Route: 062
  3. VIVELLE-DOT [Suspect]
     Dosage: 0.05 MG, UNK
     Route: 062

REACTIONS (7)
  - APPLICATION SITE RASH [None]
  - DISCOMFORT [None]
  - PAIN [None]
  - POST PROCEDURAL COMPLICATION [None]
  - PRURITUS [None]
  - SKIN IRRITATION [None]
  - THERMAL BURN [None]
